FAERS Safety Report 7320993-2 (Version None)
Quarter: 2011Q1

REPORT INFORMATION
  Report Type: 
  Country: None (occurrence: None)
  Receive Date: 20110228
  Receipt Date: 20110218
  Transmission Date: 20110831
  Serious: Yes (Death, Hospitalization, Other)
  Sender: FDA-Public Use
  Company Number: JP-JNJFOC-20100907995

PATIENT
  Age: 60 Year
  Sex: Male
  Weight: 50 kg

DRUGS (16)
  1. OXINORM [Concomitant]
     Route: 048
  2. FLUOROURACIL [Suspect]
     Indication: HEAD AND NECK CANCER
     Route: 041
  3. DUROTEP [Suspect]
     Indication: NEOPLASM MALIGNANT
     Route: 062
  4. LOPEMIN [Suspect]
     Indication: DIARRHOEA
     Route: 048
  5. LOXONIN [Concomitant]
     Route: 048
  6. MARZULENE-S [Concomitant]
     Route: 048
  7. LOPEMIN [Suspect]
     Route: 048
  8. MORPHINE SULFATE [Suspect]
     Indication: PAIN
     Route: 048
  9. MORPHINE SULFATE [Suspect]
     Route: 048
  10. CALONAL [Concomitant]
     Route: 048
  11. DUROTEP [Suspect]
     Route: 062
  12. CALONAL [Concomitant]
     Route: 048
  13. CISPLATIN [Concomitant]
     Indication: HEAD AND NECK CANCER
     Route: 041
  14. ENSURE [Concomitant]
     Route: 048
  15. MORPHINE SULFATE [Suspect]
     Route: 048
  16. NOVAMIN [Concomitant]
     Route: 048

REACTIONS (7)
  - MULTI-ORGAN FAILURE [None]
  - ENTERITIS INFECTIOUS [None]
  - ACIDOSIS [None]
  - SHOCK [None]
  - INTESTINAL OBSTRUCTION [None]
  - PORTAL VENOUS GAS [None]
  - DRUG INEFFECTIVE [None]
